FAERS Safety Report 25279402 (Version 1)
Quarter: 2025Q2

REPORT INFORMATION
  Report Type: Spontaneous
  Country: ES (occurrence: ES)
  Receive Date: 20250507
  Receipt Date: 20250507
  Transmission Date: 20250717
  Serious: Yes (Hospitalization)
  Sender: PFIZER
  Company Number: None

PATIENT
  Age: 55 Year
  Sex: Female

DRUGS (2)
  1. AZITHROMYCIN [Suspect]
     Active Substance: AZITHROMYCIN
     Indication: Acute respiratory failure
     Dosage: 500 MG, 1X/DAY, AT 9 HOURS
     Route: 048
     Dates: start: 20240902, end: 20240904
  2. CEFTRIAXONE [Suspect]
     Active Substance: CEFTRIAXONE
     Indication: Acute respiratory failure
     Dosage: 2 G, 1X/DAY, AT 9 HOURS
     Route: 042
     Dates: start: 20240902, end: 20240904

REACTIONS (1)
  - Hepatic cytolysis [Recovered/Resolved]

NARRATIVE: CASE EVENT DATE: 20240906
